FAERS Safety Report 12442416 (Version 1)
Quarter: 2016Q2

REPORT INFORMATION
  Report Type: Spontaneous
  Country: US (occurrence: None)
  Receive Date: 20160606
  Receipt Date: 20160606
  Transmission Date: 20160815
  Serious: No
  Sender: FDA-Public Use
  Company Number: None

PATIENT
  Sex: Female

DRUGS (1)
  1. IBRANCE [Suspect]
     Active Substance: PALBOCICLIB
     Indication: PRODUCT USED FOR UNKNOWN INDICATION
     Dosage: 100MG DAILY FOR 21 DAYS ON, 7 DAYS OFF PO
     Route: 048
     Dates: start: 20151121

REACTIONS (3)
  - Muscle spasms [None]
  - Contusion [None]
  - Vein rupture [None]
